FAERS Safety Report 18876117 (Version 1)
Quarter: 2021Q1

REPORT INFORMATION
  Report Type: Spontaneous
  Country: JP (occurrence: JP)
  Receive Date: 20210210
  Receipt Date: 20210210
  Transmission Date: 20210420
  Serious: Yes (Hospitalization)
  Sender: FDA-Public Use
  Company Number: JP-ALLERGAN-2105908US

PATIENT
  Sex: Male

DRUGS (3)
  1. LEXAPRO [Suspect]
     Active Substance: ESCITALOPRAM OXALATE
     Indication: DEPRESSION
     Dosage: 20 MG, QD
     Route: 048
  2. LEXAPRO [Suspect]
     Active Substance: ESCITALOPRAM OXALATE
     Dosage: 7.5 MG, QD
     Route: 048
  3. LEXAPRO [Suspect]
     Active Substance: ESCITALOPRAM OXALATE
     Dosage: 10 MG, QD
     Route: 048

REACTIONS (6)
  - Diarrhoea [Recovering/Resolving]
  - Feeling guilty [Recovering/Resolving]
  - Suicidal ideation [Recovered/Resolved]
  - Depressive symptom [Recovering/Resolving]
  - Insomnia [Recovering/Resolving]
  - Wrong technique in product usage process [Unknown]
